FAERS Safety Report 16698377 (Version 1)
Quarter: 2019Q3

REPORT INFORMATION
  Report Type: Spontaneous
  Country: US (occurrence: US)
  Receive Date: 20190813
  Receipt Date: 20190813
  Transmission Date: 20191004
  Serious: Yes (Other)
  Sender: FDA-Public Use
  Company Number: US-FRESENIUS KABI-FK201908869

PATIENT
  Age: 67 Year
  Sex: Female

DRUGS (3)
  1. VANCOMYCIN (MANUFACTURER UNKNOWN) [Suspect]
     Active Substance: VANCOMYCIN
     Indication: STAPHYLOCOCCAL INFECTION
     Dosage: UNKNOWN
     Route: 042
  2. VANCOMYCIN (MANUFACTURER UNKNOWN) [Suspect]
     Active Substance: VANCOMYCIN
     Indication: BACTERAEMIA
     Dosage: UNKNOWN
     Route: 042
  3. PIPERACILLIN SODIUM/TAZOBACTAM SODIUM [Concomitant]
     Indication: CHOLECYSTITIS
     Dosage: UNKNOWN
     Route: 065

REACTIONS (3)
  - Bacteraemia [Unknown]
  - Staphylococcal infection [Unknown]
  - Cholecystitis acute [Unknown]
